FAERS Safety Report 5769448-7 (Version None)
Quarter: 2008Q2

REPORT INFORMATION
  Report Type: 
  Country: None (occurrence: None)
  Receive Date: 20080612
  Receipt Date: 20080325
  Transmission Date: 20081010
  Serious: No
  Sender: FDA-Public Use
  Company Number: US-ABBOTT-08P-163-0444478-00

PATIENT
  Sex: Female
  Weight: 90.8 kg

DRUGS (1)
  1. HUMIRA [Suspect]
     Indication: RHEUMATOID ARTHRITIS
     Route: 058
     Dates: start: 20080101, end: 20080101

REACTIONS (5)
  - DYSPHAGIA [None]
  - DYSPNOEA [None]
  - INJECTION SITE REACTION [None]
  - LATEX ALLERGY [None]
  - RASH GENERALISED [None]
